FAERS Safety Report 6143556-3 (Version None)
Quarter: 2009Q2

REPORT INFORMATION
  Report Type: 
  Country: None (occurrence: None)
  Receive Date: 20090403
  Receipt Date: 20090326
  Transmission Date: 20091009
  Serious: Yes (Other)
  Sender: FDA-Public Use
  Company Number: US-PFIZER INC-2009189443

PATIENT
  Age: 25 Year
  Sex: Female

DRUGS (2)
  1. ZOLOFT [Suspect]
  2. ORAL CONTRACEPTIVE NOS [Concomitant]

REACTIONS (4)
  - FALL [None]
  - INJURY [None]
  - SOMNOLENCE [None]
  - THIRST [None]
